FAERS Safety Report 12777578 (Version 5)
Quarter: 2016Q4

REPORT INFORMATION
  Report Type: Report from Study
  Country: None (occurrence: BE)
  Receive Date: 20160924
  Receipt Date: 20161230
  Transmission Date: 20170207
  Serious: Yes (Hospitalization)
  Sender: FDA-Public Use
  Company Number: BE-ABBVIE-16K-013-1732999-00

PATIENT
  Sex: Male

DRUGS (8)
  1. DUODOPA [Suspect]
     Active Substance: CARBIDOPA\LEVODOPA
     Dosage: AM= 4 ML; CD= 2.5 ML/H DURING 16 HRS; ED= 2.5 ML
     Route: 050
     Dates: start: 20160919, end: 20160930
  2. DUODOPA [Suspect]
     Active Substance: CARBIDOPA\LEVODOPA
     Dosage: AM= 3.5ML, CD=2.3ML/HR DURING 16HRS, ED=2ML
     Route: 050
     Dates: start: 20160930, end: 20161011
  3. DUODOPA [Suspect]
     Active Substance: CARBIDOPA\LEVODOPA
     Dosage: AM= 9 ML; CD= 3.5 ML/H DURING 16 HRS; ED= 2.5 ML
     Route: 050
     Dates: start: 20091008, end: 20091016
  4. DUODOPA [Suspect]
     Active Substance: CARBIDOPA\LEVODOPA
     Dosage: AM=4ML; CD= 3.3 ML/H DURING 16 HRS; ED= 2.5 ML
     Route: 050
     Dates: start: 20160704, end: 20160919
  5. DUODOPA [Suspect]
     Active Substance: CARBIDOPA\LEVODOPA
     Dosage: AM= 3,5 ML; CD= 2,5 ML/H DURING 16 HRS; ED= 2 ML
     Route: 050
     Dates: start: 20161011
  6. DUODOPA [Suspect]
     Active Substance: CARBIDOPA\LEVODOPA
     Dosage: DOSES CONTINUOUSLY MONITORED AND ADAPTED
     Route: 050
     Dates: start: 20091016, end: 20160704
  7. DUODOPA [Suspect]
     Active Substance: CARBIDOPA\LEVODOPA
     Indication: PARKINSON^S DISEASE
     Route: 050
     Dates: start: 20091005, end: 20091008
  8. AZILECT [Concomitant]
     Active Substance: RASAGILINE MESYLATE
     Indication: PRODUCT USED FOR UNKNOWN INDICATION

REACTIONS (3)
  - Intestinal obstruction [Unknown]
  - Faecaloma [Unknown]
  - Underdose [Unknown]
